FAERS Safety Report 5674960-5 (Version None)
Quarter: 2008Q2

REPORT INFORMATION
  Report Type: 
  Country: None (occurrence: None)
  Receive Date: 20080303
  Receipt Date: 20070413
  Transmission Date: 20081010
  Serious: Yes (Hospitalization)
  Sender: FDA-Public Use
  Company Number: RB-5919-2007

PATIENT
  Sex: Male

DRUGS (2)
  1. SUBOXONE [Suspect]
     Indication: DRUG DEPENDENCE
     Dosage: 4 MG BID SUBLINGUAL
     Route: 060
     Dates: start: 20070411
  2. METHADON HCL TAB [Concomitant]

REACTIONS (4)
  - ABDOMINAL PAIN [None]
  - RESTLESSNESS [None]
  - RETCHING [None]
  - VOMITING [None]
